FAERS Safety Report 5710343-7 (Version None)
Quarter: 2008Q2

REPORT INFORMATION
  Report Type: 
  Country: None (occurrence: None)
  Receive Date: 20080418
  Receipt Date: 20080407
  Transmission Date: 20081010
  Serious: Yes (Other)
  Sender: FDA-Public Use
  Company Number: US-PFIZER INC-2008031722

PATIENT
  Sex: Male
  Weight: 87.727 kg

DRUGS (3)
  1. CHANTIX [Suspect]
     Indication: SMOKING CESSATION THERAPY
  2. KLONOPIN [Concomitant]
  3. AMBIEN [Concomitant]

REACTIONS (5)
  - DEPRESSION [None]
  - DYSSTASIA [None]
  - MALAISE [None]
  - SUICIDAL IDEATION [None]
  - VOMITING [None]
